FAERS Safety Report 7782851-9 (Version None)
Quarter: 2011Q3

REPORT INFORMATION
  Report Type: 
  Country: None (occurrence: None)
  Receive Date: 20110926
  Receipt Date: 20110916
  Transmission Date: 20111222
  Serious: Yes (Hospitalization)
  Sender: FDA-Public Use
  Company Number: US-006304

PATIENT
  Age: 35 Year
  Sex: Female

DRUGS (1)
  1. TRANEXAMIC ACID [Suspect]
     Indication: METRORRHAGIA
     Dates: end: 20110801

REACTIONS (3)
  - CHOLECYSTECTOMY [None]
  - REFUSAL OF TREATMENT BY PATIENT [None]
  - GALLBLADDER DISORDER [None]
